FAERS Safety Report 24642906 (Version 2)
Quarter: 2024Q4

REPORT INFORMATION
  Report Type: Report from Study
  Country: DE (occurrence: DE)
  Receive Date: 20241120
  Receipt Date: 20241122
  Transmission Date: 20250114
  Serious: Yes (Other)
  Sender: ROCHE
  Company Number: DE-ROCHE-10000129353

PATIENT

DRUGS (2)
  1. ATEZOLIZUMAB [Suspect]
     Active Substance: ATEZOLIZUMAB
     Indication: Hepatocellular carcinoma
     Route: 065
  2. BEVACIZUMAB [Suspect]
     Active Substance: BEVACIZUMAB
     Indication: Hepatocellular carcinoma
     Route: 065

REACTIONS (21)
  - Intestinal varices haemorrhage [Unknown]
  - Gastrointestinal haemorrhage [Unknown]
  - Pulmonary embolism [Unknown]
  - Embolism [Unknown]
  - Immune-mediated hepatitis [Unknown]
  - Immune-mediated arthritis [Unknown]
  - Immune-mediated myositis [Unknown]
  - Immune-mediated enterocolitis [Unknown]
  - Immune-mediated nephritis [Unknown]
  - Immune-mediated lung disease [Unknown]
  - Skin disorder [Unknown]
  - Mucosal disorder [Unknown]
  - Immune-mediated thyroiditis [Unknown]
  - Immune-mediated neuropathy [Unknown]
  - Ascites [Unknown]
  - Hepatic encephalopathy [Unknown]
  - General physical health deterioration [Unknown]
  - Fatigue [Unknown]
  - Diarrhoea [Unknown]
  - Palmar-plantar erythrodysaesthesia syndrome [Unknown]
  - Hypertension [Unknown]
